FAERS Safety Report 10142143 (Version 1)
Quarter: 2014Q2

REPORT INFORMATION
  Report Type: Spontaneous
  Country: CH (occurrence: CH)
  Receive Date: 20140429
  Receipt Date: 20140429
  Transmission Date: 20141212
  Serious: Yes (Death)
  Sender: FDA-Public Use
  Company Number: PHHY2014CH049697

PATIENT
  Age: 83 Year
  Sex: Female

DRUGS (13)
  1. METHOTREXATE SANDOZ [Suspect]
     Indication: RHEUMATOID ARTHRITIS
     Dosage: 10 MG, QW
     Route: 048
     Dates: start: 201307, end: 20131105
  2. FENTANYL MEPHA [Concomitant]
     Dosage: 12 UG/HR, QD
  3. METOPROLOL MEPHA ZOK [Concomitant]
     Dosage: 100 MG, UNK
  4. ACIDUM FOLICUM STREULI [Concomitant]
     Dosage: 5 MG, BIW
  5. LASIX [Concomitant]
     Dosage: 40 MG, QD
  6. ELTROXIN LF [Concomitant]
     Dosage: 0.1 MG, QD
  7. PREDNISOLON STREULI [Concomitant]
     Dosage: 5 MG, QD
  8. PANTOZOL [Concomitant]
     Dosage: 40 MG, QD
  9. ROCALTROL [Concomitant]
     Dosage: 25 UG, QD
  10. DAFALGAN [Concomitant]
     Dosage: 1 G, PRN
  11. ALENDRONAT SPIRIG [Concomitant]
     Dosage: 70 MG, UNK
  12. MOTILIUM [Concomitant]
     Dosage: 10 MG, PRN
  13. MEPHADOLOR NEO [Concomitant]
     Dosage: 500 MG, UNK

REACTIONS (1)
  - Aphthous stomatitis [Fatal]
